FAERS Safety Report 14317311 (Version 2)
Quarter: 2018Q2

REPORT INFORMATION
  Report Type: Spontaneous
  Country: DE (occurrence: DE)
  Receive Date: 20171222
  Receipt Date: 20180620
  Transmission Date: 20180711
  Serious: Yes (Hospitalization)
  Sender: FDA-Public Use
  Company Number: DE-ALKEM LABORATORIES LIMITED-DE-ALKEM-2017-01376

PATIENT
  Age: 22 Year
  Sex: Male

DRUGS (9)
  1. LORAZEPAM. [Suspect]
     Active Substance: LORAZEPAM
     Indication: PRODUCT USED FOR UNKNOWN INDICATION
     Dosage: 1 MG, OD
     Route: 065
     Dates: start: 20160831, end: 20160909
  2. HALDOL [Suspect]
     Active Substance: HALOPERIDOL
     Dosage: 4 MG, OD (2MG-0MG-2MG)
     Route: 048
     Dates: start: 20160912
  3. AKINETON [Concomitant]
     Active Substance: BIPERIDEN HYDROCHLORIDE
     Indication: PRODUCT USED FOR UNKNOWN INDICATION
     Dosage: 8 MG, OD (TABLET)
     Route: 065
     Dates: start: 20160912
  4. RISPERDAL [Suspect]
     Active Substance: RISPERIDONE
     Dosage: 6 MG, OD (3MG- 0 MG- 3 MG)
     Route: 048
     Dates: start: 20160829, end: 20160831
  5. RISPERDAL [Suspect]
     Active Substance: RISPERIDONE
     Dosage: 4 MG, OD  (2MG- 0 MG- 2 MG)
     Route: 048
     Dates: start: 20160901, end: 20160909
  6. QUETIAPINE FUMARATE. [Suspect]
     Active Substance: QUETIAPINE FUMARATE
     Indication: PRODUCT USED FOR UNKNOWN INDICATION
     Dosage: UNKNOWN
     Route: 065
  7. HALDOL [Suspect]
     Active Substance: HALOPERIDOL
     Indication: PRODUCT USED FOR UNKNOWN INDICATION
     Dosage: 15 MG, OD (2.5MG-0MG-5MG)
     Route: 048
     Dates: start: 201609
  8. RISPERDAL [Suspect]
     Active Substance: RISPERIDONE
     Dosage: 4 MG, OD ( (2MG- 0 MG- 2MG)
     Route: 048
     Dates: start: 20160826, end: 20160828
  9. RISPERDAL [Suspect]
     Active Substance: RISPERIDONE
     Indication: SCHIZOPHRENIA
     Dosage: 3 MG, OD
     Route: 048
     Dates: start: 20160822, end: 20160822

REACTIONS (5)
  - Psychotic disorder [Unknown]
  - Oropharyngeal spasm [Recovered/Resolved]
  - Refusal of treatment by patient [Unknown]
  - Dyskinesia [Recovered/Resolved]
  - Dysphagia [Recovered/Resolved]

NARRATIVE: CASE EVENT DATE: 20160831
